FAERS Safety Report 9087389 (Version 1)
Quarter: 2013Q1

REPORT INFORMATION
  Report Type: Spontaneous
  Country: CL (occurrence: CL)
  Receive Date: 20130201
  Receipt Date: 20130201
  Transmission Date: 20140127
  Serious: Yes (Death, Other)
  Sender: FDA-Public Use
  Company Number: CL-BRISTOL-MYERS SQUIBB COMPANY-17323890

PATIENT
  Sex: 0

DRUGS (3)
  1. IPILIMUMAB [Suspect]
     Indication: MALIGNANT MELANOMA
     Dates: start: 20130122
  2. CIPROFLOXACIN [Concomitant]
  3. VANCOMICINA [Concomitant]

REACTIONS (2)
  - Death [Fatal]
  - Pyrexia [Unknown]
